FAERS Safety Report 26144803 (Version 1)
Quarter: 2025Q4

REPORT INFORMATION
  Report Type: Spontaneous
  Country: US (occurrence: None)
  Receive Date: 20251210
  Receipt Date: 20251210
  Transmission Date: 20260117
  Serious: Yes (Death)
  Sender: FDA-CTU
  Company Number: None

PATIENT
  Age: 78 Year
  Sex: Female

DRUGS (1)
  1. SPIRIVA RESPIMAT [Suspect]
     Active Substance: TIOTROPIUM BROMIDE
     Dosage: OTHER QUANTITY : 0.083%, 2.5MCG;?OTHER FREQUENCY : 1 VIAL EVERY 5 HOURS, 2 PUFFS DAILY;

REACTIONS (1)
  - Death [None]
